FAERS Safety Report 9022197 (Version 1)
Quarter: 2013Q1

REPORT INFORMATION
  Report Type: Spontaneous
  Country: BG (occurrence: BG)
  Receive Date: 20130118
  Receipt Date: 20130118
  Transmission Date: 20140127
  Serious: Yes (Other)
  Sender: FDA-Public Use
  Company Number: BG-ASTRAZENECA-2013SE02722

PATIENT
  Age: 69 Year
  Sex: Female

DRUGS (3)
  1. VIMOVO [Suspect]
     Indication: OSTEOARTHRITIS
     Dosage: 500 MG/20 MG, TWICE DAILY
     Route: 048
  2. MILGAMMA [Concomitant]
  3. MYDOCALM [Concomitant]

REACTIONS (3)
  - Drug eruption [Unknown]
  - Hypertension [Unknown]
  - Nervousness [Unknown]
